FAERS Safety Report 18391170 (Version 1)
Quarter: 2020Q4

REPORT INFORMATION
  Report Type: Report from Study
  Country: US (occurrence: US)
  Receive Date: 20201016
  Receipt Date: 20201016
  Transmission Date: 20210114
  Serious: Yes (Hospitalization, Other)
  Sender: FDA-Public Use
  Company Number: US-GILEAD-2020-0494126

PATIENT
  Age: 59 Year
  Sex: Female

DRUGS (11)
  1. AZTREONAM LYSINE [Suspect]
     Active Substance: AZTREONAM LYSINE
     Indication: CYSTIC FIBROSIS
     Dosage: 75 MG, TID, 28 DAYS ON, 28 DAYS OFF
     Route: 055
     Dates: start: 201401
  2. PROTONIX [OMEPRAZOLE] [Concomitant]
     Active Substance: OMEPRAZOLE
  3. ZANTAC [Concomitant]
     Active Substance: RANITIDINE HYDROCHLORIDE
  4. MIRTAZAPINE. [Concomitant]
     Active Substance: MIRTAZAPINE
  5. PROAIR HFA [Concomitant]
     Active Substance: ALBUTEROL SULFATE
  6. METOPROLOL. [Concomitant]
     Active Substance: METOPROLOL
  7. TRAMADOL. [Concomitant]
     Active Substance: TRAMADOL
  8. TEMAZEPAM. [Concomitant]
     Active Substance: TEMAZEPAM
  9. PROGRAF [Concomitant]
     Active Substance: TACROLIMUS
  10. ACTONEL [Concomitant]
     Active Substance: RISEDRONATE SODIUM
  11. LEVOTHYROXINE SODIUM. [Concomitant]
     Active Substance: LEVOTHYROXINE SODIUM

REACTIONS (4)
  - Renal disorder [Not Recovered/Not Resolved]
  - Infection [Not Recovered/Not Resolved]
  - Blood sodium decreased [Unknown]
  - Lung transplant [Unknown]

NARRATIVE: CASE EVENT DATE: 201401
